FAERS Safety Report 19088575 (Version 1)
Quarter: 2021Q2

REPORT INFORMATION
  Report Type: Other
  Country: CA (occurrence: CA)
  Receive Date: 20210402
  Receipt Date: 20210402
  Transmission Date: 20210717
  Serious: Yes (Other)
  Sender: FDA-Public Use
  Company Number: CA-VALIDUS PHARMACEUTICALS LLC-CA-2021VAL001083

PATIENT

DRUGS (22)
  1. FUROSEMIDE. [Suspect]
     Active Substance: FUROSEMIDE
     Indication: OEDEMA PERIPHERAL
     Dosage: UNK
     Route: 048
  2. RITUXIMAB. [Suspect]
     Active Substance: RITUXIMAB
     Dosage: 375 MG/M2, Q4W
     Route: 065
  3. AZATHIOPRINE. [Concomitant]
     Active Substance: AZATHIOPRINE
     Indication: PRODUCT USED FOR UNKNOWN INDICATION
     Dosage: UNK
  4. BENDAMUSTINE HYDROCHLORIDE. [Suspect]
     Active Substance: BENDAMUSTINE HYDROCHLORIDE
     Indication: CRYOGLOBULINAEMIA
     Dosage: UNK
     Route: 042
  5. BORTEZOMIB. [Suspect]
     Active Substance: BORTEZOMIB
     Indication: CRYOGLOBULINAEMIA
     Dosage: UNK
     Route: 065
  6. CYCLOPHOSPHAMIDE. [Suspect]
     Active Substance: CYCLOPHOSPHAMIDE
     Indication: CRYOGLOBULINAEMIA
     Dosage: UNK
     Route: 065
  7. DEXAMETHASONE. [Suspect]
     Active Substance: DEXAMETHASONE
     Indication: GLOMERULONEPHRITIS MEMBRANOPROLIFERATIVE
     Dosage: UNK
     Route: 065
  8. DEXAMETHASONE. [Suspect]
     Active Substance: DEXAMETHASONE
     Indication: CRYOGLOBULINAEMIA
     Dosage: UNK
     Route: 065
  9. BORTEZOMIB. [Suspect]
     Active Substance: BORTEZOMIB
     Indication: GLOMERULONEPHRITIS MEMBRANOPROLIFERATIVE
  10. RITUXIMAB. [Suspect]
     Active Substance: RITUXIMAB
     Indication: GLOMERULONEPHRITIS MEMBRANOPROLIFERATIVE
     Dosage: 1 G, UNK
     Route: 042
  11. FUROSEMIDE. [Suspect]
     Active Substance: FUROSEMIDE
     Dosage: 80 MG, Q12H
     Route: 065
  12. BENDAMUSTINE HYDROCHLORIDE. [Suspect]
     Active Substance: BENDAMUSTINE HYDROCHLORIDE
     Indication: GLOMERULONEPHRITIS MEMBRANOPROLIFERATIVE
     Dosage: UNK
     Route: 065
  13. CYCLOPHOSPHAMIDE. [Suspect]
     Active Substance: CYCLOPHOSPHAMIDE
     Indication: GLOMERULONEPHRITIS MEMBRANOPROLIFERATIVE
     Dosage: UNK
     Route: 042
  14. CYCLOPHOSPHAMIDE. [Suspect]
     Active Substance: CYCLOPHOSPHAMIDE
     Indication: GLOMERULONEPHRITIS MEMBRANOPROLIFERATIVE
  15. DEXAMETHASONE. [Suspect]
     Active Substance: DEXAMETHASONE
     Indication: GLOMERULONEPHRITIS MEMBRANOPROLIFERATIVE
  16. LEDIPASVIR [Concomitant]
     Active Substance: LEDIPASVIR
     Indication: PRODUCT USED FOR UNKNOWN INDICATION
     Dosage: UNK
  17. METHYLPREDNISOLONE. [Concomitant]
     Active Substance: METHYLPREDNISOLONE
     Indication: PRODUCT USED FOR UNKNOWN INDICATION
     Dosage: UNK
  18. PREDNISONE. [Concomitant]
     Active Substance: PREDNISONE
     Indication: PRODUCT USED FOR UNKNOWN INDICATION
     Dosage: UNK
  19. BORTEZOMIB. [Suspect]
     Active Substance: BORTEZOMIB
     Indication: GLOMERULONEPHRITIS MEMBRANOPROLIFERATIVE
     Dosage: UNK
     Route: 065
  20. SOFOSBUVIR [Concomitant]
     Active Substance: SOFOSBUVIR
     Indication: PRODUCT USED FOR UNKNOWN INDICATION
     Dosage: UNK
  21. RITUXIMAB. [Suspect]
     Active Substance: RITUXIMAB
     Indication: CRYOGLOBULINAEMIA
     Dosage: 325.0 MG/M2, QW
     Route: 065
  22. RITUXIMAB. [Suspect]
     Active Substance: RITUXIMAB
     Indication: GLOMERULONEPHRITIS MEMBRANOPROLIFERATIVE
     Dosage: 375 MG/M2, UNK
     Route: 042

REACTIONS (3)
  - Nephropathy toxic [Unknown]
  - Drug ineffective [Unknown]
  - Drug resistance [Unknown]
